FAERS Safety Report 19520844 (Version 3)
Quarter: 2022Q4

REPORT INFORMATION
  Report Type: Report from Study
  Country: KR (occurrence: KR)
  Receive Date: 20210712
  Receipt Date: 20221209
  Transmission Date: 20230113
  Serious: Yes (Hospitalization, Other)
  Sender: FDA-Public Use
  Company Number: KR-TAKEDA-2021TJP048831

PATIENT
  Age: 51 Year
  Sex: Female
  Weight: 38.4 kg

DRUGS (13)
  1. NIRAPARIB [Suspect]
     Active Substance: NIRAPARIB
     Indication: Ovarian cancer
     Dosage: 200 MILLIGRAM, QD
     Route: 048
     Dates: start: 20210428, end: 20210616
  2. RAMOSETRON HYDROCHLORIDE [Concomitant]
     Active Substance: RAMOSETRON HYDROCHLORIDE
     Indication: Prophylaxis
     Dosage: UNK UNK, QD
     Route: 048
     Dates: start: 20210428, end: 20210429
  3. METOCLOPRAMIDE HYDROCHLORIDE [Concomitant]
     Active Substance: METOCLOPRAMIDE HYDROCHLORIDE
     Indication: Prophylaxis
     Dosage: UNK UNK, TID
     Route: 048
     Dates: start: 20210428, end: 20210502
  4. STILLEN [Concomitant]
     Indication: Dyspepsia
     Dosage: UNK UNK, TID
     Route: 048
     Dates: start: 20210525, end: 20210601
  5. STILLEN [Concomitant]
     Dosage: UNK UNK, TID
     Route: 048
     Dates: start: 20210706
  6. GASTER [Concomitant]
     Active Substance: FAMOTIDINE
     Indication: Dyspepsia
     Dosage: UNK UNK, BID
     Route: 048
     Dates: start: 20210525, end: 20210601
  7. GASTER [Concomitant]
     Active Substance: FAMOTIDINE
     Dosage: UNK UNK, BID
     Route: 048
     Dates: start: 20210706
  8. DOMPERIDONE MALEATE [Concomitant]
     Active Substance: DOMPERIDONE MALEATE
     Indication: Dyspepsia
     Dosage: UNK UNK, TID
     Route: 048
     Dates: start: 20210525, end: 20210601
  9. DOMPERIDONE MALEATE [Concomitant]
     Active Substance: DOMPERIDONE MALEATE
     Dosage: UNK UNK, TID
     Route: 065
     Dates: start: 20210706
  10. GRASIN [Concomitant]
     Indication: Neutropenia
     Dosage: 150 MICROGRAM, QD
     Route: 058
     Dates: start: 20210618, end: 20210618
  11. FLASINYL [Concomitant]
     Indication: Anal abscess
     Dosage: UNK UNK, TID
     Route: 048
     Dates: start: 20210625, end: 20210628
  12. FLASINYL [Concomitant]
     Dosage: UNK UNK, TID
     Route: 048
     Dates: start: 20210629, end: 20210703
  13. ACETAMINOPHEN [Concomitant]
     Active Substance: ACETAMINOPHEN
     Indication: Prophylaxis
     Dosage: 20 MILLIGRAM, BID
     Route: 042
     Dates: start: 20210624, end: 20210626

REACTIONS (1)
  - Anal abscess [Recovered/Resolved]

NARRATIVE: CASE EVENT DATE: 20210624
